FAERS Safety Report 23962525 (Version 4)
Quarter: 2024Q3

REPORT INFORMATION
  Report Type: Spontaneous
  Country: US (occurrence: US)
  Receive Date: 20240611
  Receipt Date: 20240827
  Transmission Date: 20241017
  Serious: Yes (Death, Hospitalization, Other)
  Sender: PFIZER
  Company Number: US-PFIZER INC-202400190464

PATIENT
  Age: 68 Year
  Sex: Male
  Weight: 90.703 kg

DRUGS (2)
  1. BLEOMYCIN SULFATE [Suspect]
     Active Substance: BLEOMYCIN SULFATE
     Indication: Testicular cancer metastatic
     Dosage: UNK
     Dates: start: 202311
  2. BLEOMYCIN SULFATE [Suspect]
     Active Substance: BLEOMYCIN SULFATE
     Dosage: UNK
     Dates: start: 202312

REACTIONS (7)
  - Toxicity to various agents [Fatal]
  - Respiratory failure [Fatal]
  - Stomatitis [Unknown]
  - Dehydration [Unknown]
  - Dyspnoea [Unknown]
  - Recalled product administered [Unknown]
  - Neoplasm progression [Unknown]

NARRATIVE: CASE EVENT DATE: 20240401
